FAERS Safety Report 25281714 (Version 3)
Quarter: 2025Q2

REPORT INFORMATION
  Report Type: Report from Study
  Country: CN (occurrence: CN)
  Receive Date: 20250508
  Receipt Date: 20250611
  Transmission Date: 20250717
  Serious: Yes (Hospitalization)
  Sender: BIOGEN
  Company Number: CN-BAT-2025BAT000418

PATIENT
  Age: 71 Year
  Sex: Male
  Weight: 59 kg

DRUGS (6)
  1. TOFIDENCE [Suspect]
     Active Substance: TOCILIZUMAB-BAVI
     Indication: Prophylaxis
     Route: 041
     Dates: start: 20250221, end: 20250221
  2. TOFIDENCE [Suspect]
     Active Substance: TOCILIZUMAB-BAVI
     Indication: Prophylaxis
     Route: 041
     Dates: start: 20250321, end: 20250321
  3. TOFIDENCE [Suspect]
     Active Substance: TOCILIZUMAB-BAVI
     Indication: Prophylaxis
     Route: 041
     Dates: start: 20250411, end: 20250411
  4. INVESTIGATIONAL PRODUCT [Suspect]
     Active Substance: INVESTIGATIONAL PRODUCT
     Indication: Hepatic cancer
     Route: 041
     Dates: start: 20250221, end: 20250221
  5. INVESTIGATIONAL PRODUCT [Suspect]
     Active Substance: INVESTIGATIONAL PRODUCT
     Indication: Hepatic cancer
     Route: 041
     Dates: start: 20250321, end: 20250321
  6. INVESTIGATIONAL PRODUCT [Suspect]
     Active Substance: INVESTIGATIONAL PRODUCT
     Indication: Hepatic cancer
     Route: 041
     Dates: start: 20250411, end: 20250411

REACTIONS (2)
  - Bronchitis [Recovered/Resolved]
  - Off label use [Unknown]

NARRATIVE: CASE EVENT DATE: 20250221
